FAERS Safety Report 5556050-5 (Version None)
Quarter: 2007Q4

REPORT INFORMATION
  Report Type: 
  Country: None (occurrence: None)
  Receive Date: 20071211
  Receipt Date: 20071203
  Transmission Date: 20080405
  Serious: Yes (Death)
  Sender: FDA-Public Use
  Company Number: 2007-GWUS-0635

PATIENT
  Age: 77 Year
  Sex: Male
  Weight: 81.6475 kg

DRUGS (2)
  1. ALDARA [Suspect]
     Indication: ACTINIC KERATOSIS
     Dosage: APPLICATION - 5XW - TOPICAL
     Route: 061
     Dates: start: 20070806, end: 20070911
  2. ^MULTIPLE^ UNSPECIFIED MEDICATIONS [Concomitant]

REACTIONS (6)
  - ADVERSE DRUG REACTION [None]
  - APPLICATION SITE DISCHARGE [None]
  - APPLICATION SITE ERYTHEMA [None]
  - APPLICATION SITE SCAB [None]
  - COAGULOPATHY [None]
  - INCORRECT DOSE ADMINISTERED [None]
